FAERS Safety Report 8019453-5 (Version None)
Quarter: 2012Q1

REPORT INFORMATION
  Report Type: 
  Country: None (occurrence: None)
  Receive Date: 20120103
  Receipt Date: 20111228
  Transmission Date: 20120608
  Serious: Yes (Hospitalization)
  Sender: FDA-Public Use
  Company Number: PHEH2011US012589

PATIENT
  Sex: Female

DRUGS (4)
  1. CRESTOR [Concomitant]
     Dosage: 20 MG, QD
  2. ASPIRIN [Concomitant]
     Dosage: 325 MG, QD
  3. CARVEDILOL [Concomitant]
     Dosage: 12.5 MG, QD
  4. VALTURNA [Suspect]
     Dosage: 1 DF (300/320 MG) QD

REACTIONS (2)
  - ANXIETY [None]
  - CHEST PAIN [None]
